FAERS Safety Report 9659667 (Version 1)
Quarter: 2013Q4

REPORT INFORMATION
  Report Type: Spontaneous
  Country: KR (occurrence: KR)
  Receive Date: 20131031
  Receipt Date: 20131031
  Transmission Date: 20140711
  Serious: Yes (Death)
  Sender: FDA-Public Use
  Company Number: KR-JNJFOC-20131018295

PATIENT
  Sex: Female

DRUGS (6)
  1. FINIBAX [Suspect]
     Indication: PNEUMONIA
     Route: 042
     Dates: start: 20130917, end: 20131007
  2. CRAVIT [Concomitant]
     Indication: PNEUMONIA
     Route: 065
     Dates: start: 20130912, end: 20130917
  3. PREPENEM [Concomitant]
     Indication: PNEUMONIA
     Route: 065
     Dates: start: 20130912, end: 20130917
  4. TARGOCID [Concomitant]
     Indication: PNEUMONIA
     Route: 065
     Dates: start: 20130912, end: 20131002
  5. VANCOMYCIN [Concomitant]
     Indication: PNEUMONIA
     Route: 065
     Dates: start: 20130926
  6. FLASINYL [Concomitant]
     Indication: COLITIS
     Route: 065
     Dates: start: 20130926, end: 20131001

REACTIONS (2)
  - Pneumonia [Fatal]
  - Colorectal cancer [Fatal]
